FAERS Safety Report 5893904-4 (Version None)
Quarter: 2008Q3

REPORT INFORMATION
  Report Type: 
  Country: None (occurrence: None)
  Receive Date: 20080923
  Receipt Date: 20071206
  Transmission Date: 20090109
  Serious: No
  Sender: FDA-Public Use
  Company Number: US-ASTRAZENECA-2007UW27887

PATIENT
  Sex: Female
  Weight: 72.6 kg

DRUGS (6)
  1. SEROQUEL [Suspect]
     Indication: INSOMNIA
     Route: 048
     Dates: start: 20071101
  2. SEROQUEL [Suspect]
     Indication: BIPOLAR DISORDER
     Route: 048
     Dates: start: 20071101
  3. XANAX [Concomitant]
  4. AMBIEN [Concomitant]
  5. SOMA [Concomitant]
  6. BLACK COHOSH [Concomitant]

REACTIONS (8)
  - AMNESIA [None]
  - EATING DISORDER SYMPTOM [None]
  - FEELING ABNORMAL [None]
  - FEELING DRUNK [None]
  - FOOD CRAVING [None]
  - HALLUCINATION, AUDITORY [None]
  - SOMNOLENCE [None]
  - WEIGHT INCREASED [None]
